FAERS Safety Report 11058718 (Version 1)
Quarter: 2015Q2

REPORT INFORMATION
  Report Type: Spontaneous
  Country: DE (occurrence: None)
  Receive Date: 20150421
  Receipt Date: 20150421
  Transmission Date: 20150821
  Serious: Yes (Hospitalization)
  Sender: FDA-Public Use
  Company Number: DE-H14001-15-00556

PATIENT
  Age: 66 Year
  Sex: Male

DRUGS (1)
  1. CISPLATIN (CISPLATIN) (UNKNOWN) (CISPLATIN) [Suspect]
     Active Substance: CISPLATIN
     Indication: TONSIL CANCER
     Dosage: 6 CYCLES OF 73 MG WEEKLY

REACTIONS (15)
  - Mania [None]
  - Cognitive disorder [None]
  - Agitation [None]
  - Suicidal ideation [None]
  - Schizophrenia [None]
  - Abnormal behaviour [None]
  - Cyclothymic disorder [None]
  - Executive dysfunction [None]
  - Disinhibition [None]
  - Affect lability [None]
  - Anger [None]
  - Impulsive behaviour [None]
  - Patient restraint [None]
  - Aggression [None]
  - Cerebral atrophy [None]
